FAERS Safety Report 14917642 (Version 1)
Quarter: 2018Q2

REPORT INFORMATION
  Report Type: Spontaneous
  Country: FR (occurrence: FR)
  Receive Date: 20180521
  Receipt Date: 20180521
  Transmission Date: 20180711
  Serious: Yes (Other)
  Sender: FDA-Public Use
  Company Number: FR-MERCK KGAA-2048098

PATIENT
  Age: 73 Year
  Sex: Male

DRUGS (2)
  1. NOVOTHYROX [Suspect]
     Active Substance: LEVOTHYROXINE SODIUM
     Dates: start: 20171009
  2. NOVOTHYROX [Suspect]
     Active Substance: LEVOTHYROXINE SODIUM
     Indication: AUTOIMMUNE THYROIDITIS
     Dates: start: 2017

REACTIONS (25)
  - Leukoencephalopathy [None]
  - Gastrointestinal motility disorder [None]
  - Anxiety [None]
  - Fatigue [None]
  - Disturbance in attention [None]
  - Thirst [None]
  - Abnormal faeces [None]
  - Ocular dysmetria [None]
  - Nausea [None]
  - Abdominal pain upper [None]
  - Hyperhidrosis [None]
  - Dizziness [None]
  - Orthostatic hypotension [None]
  - Rehabilitation therapy [None]
  - Binocular eye movement disorder [None]
  - Blood thyroid stimulating hormone increased [Recovered/Resolved]
  - Headache [None]
  - Decreased interest [None]
  - Rhinorrhoea [None]
  - Mental impairment [None]
  - Feeling abnormal [None]
  - Asthenia [None]
  - Parosmia [None]
  - Optic nerve disorder [None]
  - Paranasal sinus mucosal hypertrophy [None]

NARRATIVE: CASE EVENT DATE: 20171009
